FAERS Safety Report 7905111-1 (Version None)
Quarter: 2011Q4

REPORT INFORMATION
  Report Type: 
  Country: None (occurrence: None)
  Receive Date: 20111109
  Receipt Date: 20111027
  Transmission Date: 20120403
  Serious: Yes (Hospitalization)
  Sender: FDA-Public Use
  Company Number: PHHY2011DK097473

PATIENT

DRUGS (25)
  1. RITUXIMAB [Suspect]
     Dosage: 700 MG (3 EXTRA RITUXIMAB)
     Route: 042
     Dates: start: 20110418
  2. RITUXIMAB [Suspect]
     Dosage: 700 MG, UNK
     Route: 042
     Dates: start: 20110516
  3. NEUPOGEN [Suspect]
     Dosage: 6 MG, UNK
     Dates: start: 20110602
  4. PREDNISOLONE [Suspect]
     Dosage: 100 MG, UNK
     Dates: start: 20110604
  5. SULFAMETHOXAZOLE [Concomitant]
     Dates: start: 20110517, end: 20110605
  6. VINCRISTINE [Suspect]
     Indication: DIFFUSE LARGE B-CELL LYMPHOMA
     Dosage: 20 MG, UNK
     Route: 042
     Dates: start: 20110311, end: 20110311
  7. VINCRISTINE [Suspect]
     Dosage: 2 MG, UNK
     Route: 042
     Dates: start: 20110411
  8. RITUXIMAB [Suspect]
     Indication: DIFFUSE LARGE B-CELL LYMPHOMA
     Dosage: 700 MG, UNK
     Route: 042
     Dates: start: 20110311, end: 20110311
  9. RITUXIMAB [Suspect]
     Dosage: 700 MG, UNK
     Route: 042
     Dates: start: 20110411
  10. DOXORUBICIN HCL [Suspect]
     Dosage: 93 MG, UNK
     Route: 042
     Dates: start: 20110411
  11. CYCLOPHOSPHAMIDE [Suspect]
     Indication: DIFFUSE LARGE B-CELL LYMPHOMA
     Dosage: 1425 MG, UNK
     Route: 042
     Dates: start: 20110311, end: 20110311
  12. CYCLOPHOSPHAMIDE [Suspect]
     Dosage: 1425 MG, UNK
     Route: 042
     Dates: start: 20110516
  13. CYCLOPHOSPHAMIDE [Suspect]
     Dosage: 1425 MG, UNK
     Route: 042
     Dates: start: 20110530
  14. SULFAMETHOXAZOLE [Concomitant]
     Dosage: 400 MG, UNK
     Dates: start: 20110313
  15. DOXORUBICIN HCL [Suspect]
     Indication: DIFFUSE LARGE B-CELL LYMPHOMA
     Dosage: 95 MG, UNK
     Route: 042
     Dates: start: 20110311, end: 20110311
  16. PREDNISOLONE [Suspect]
     Indication: DIFFUSE LARGE B-CELL LYMPHOMA
     Dosage: 100 MG, UNK
     Route: 048
     Dates: start: 20110311, end: 20110314
  17. NEUPOGEN [Suspect]
     Dosage: 6 MG, UNK
     Dates: start: 20110519
  18. DOXORUBICIN HCL [Suspect]
     Dosage: 93 MG, UNK
     Route: 042
     Dates: start: 20110516
  19. DOXORUBICIN HCL [Suspect]
     Dosage: 93 MG, UNK
     Route: 042
     Dates: start: 20110516, end: 20110530
  20. PREDNISOLONE [Suspect]
     Dosage: 100 MG, UNK
     Dates: start: 20110411
  21. PREDNISOLONE [Suspect]
     Dosage: 100 MG, UNK
     Dates: start: 20110516
  22. RITUXIMAB [Suspect]
     Dosage: 700 MG, UNK
     Route: 042
     Dates: start: 20110530
  23. CYCLOPHOSPHAMIDE [Suspect]
     Dosage: 1425 MG, UNK
     Route: 042
     Dates: start: 20110411
  24. NEUPOGEN [Suspect]
     Indication: DIFFUSE LARGE B-CELL LYMPHOMA
     Dosage: 6 MG, UNK
  25. NEUPOGEN [Suspect]
     Dosage: 6 MG, UNK
     Dates: start: 20110414

REACTIONS (9)
  - FEBRILE NEUTROPENIA [None]
  - GENERAL PHYSICAL HEALTH DETERIORATION [None]
  - GASTRIC ULCER [None]
  - GASTRIC ULCER HAEMORRHAGE [None]
  - FUNGAL INFECTION [None]
  - PNEUMONIA [None]
  - FAECES DISCOLOURED [None]
  - DIARRHOEA [None]
  - ASTHENIA [None]
